FAERS Safety Report 4448620-2 (Version None)
Quarter: 2004Q3

REPORT INFORMATION
  Report Type: 
  Country: None (occurrence: None)
  Receive Date: 20040909
  Receipt Date: 20040909
  Transmission Date: 20050211
  Serious: Yes (Hospitalization)
  Sender: FDA-Public Use
  Company Number: None

PATIENT
  Sex: Female
  Weight: 127.9 kg

DRUGS (6)
  1. VANCOMYCIN [Suspect]
     Indication: ARTHRITIS INFECTIVE
     Dosage: 1 GRAM EVERY 12 INTRAVENOUS
     Route: 042
     Dates: start: 20040818, end: 20040827
  2. VANCOMYCIN [Suspect]
     Indication: STAPHYLOCOCCAL INFECTION
     Dosage: 1 GRAM EVERY 12 INTRAVENOUS
     Route: 042
     Dates: start: 20040818, end: 20040827
  3. CEFAZOLIN [Concomitant]
  4. AMPICILLIN SODIUM/SULBACTAM SODIUM [Concomitant]
  5. TPRADOL [Concomitant]
  6. ACCUPRIL [Concomitant]

REACTIONS (6)
  - HAEMODIALYSIS [None]
  - NEPHRITIS [None]
  - PYREXIA [None]
  - RASH GENERALISED [None]
  - RASH MACULO-PAPULAR [None]
  - RENAL FAILURE ACUTE [None]
